FAERS Safety Report 4711224-8 (Version None)
Quarter: 2005Q3

REPORT INFORMATION
  Report Type: 
  Country: None (occurrence: None)
  Receive Date: 20050708
  Receipt Date: 20050623
  Transmission Date: 20060218
  Serious: Yes (Hospitalization)
  Sender: FDA-Public Use
  Company Number: 2005BI002649

PATIENT
  Age: 70 Year
  Sex: Female

DRUGS (8)
  1. AVONEX [Suspect]
     Indication: MULTIPLE SCLEROSIS
     Dosage: 30 UG; QW; IM
     Route: 030
     Dates: start: 20000601
  2. THORAZINE [Concomitant]
  3. ATIVAN [Concomitant]
  4. MITOPROLOL [Concomitant]
  5. BENAZEPRIL [Concomitant]
  6. REMERON [Concomitant]
  7. CELEBREX [Concomitant]
  8. NEXIUM [Concomitant]

REACTIONS (3)
  - POSTOPERATIVE ADHESION [None]
  - SMALL INTESTINAL OBSTRUCTION [None]
  - WOUND INFECTION [None]
